FAERS Safety Report 7550671-6 (Version None)
Quarter: 2011Q2

REPORT INFORMATION
  Report Type: 
  Country: None (occurrence: None)
  Receive Date: 20110616
  Receipt Date: 20110608
  Transmission Date: 20111010
  Serious: Yes (Death)
  Sender: FDA-Public Use
  Company Number: US-CELGENEUS-163-21880-11052359

PATIENT
  Sex: Male

DRUGS (3)
  1. THALOMID [Suspect]
     Dosage: 100 MILLIGRAM
     Route: 048
     Dates: start: 20100901
  2. THALOMID [Suspect]
     Dosage: 150 MILLIGRAM
     Dates: start: 20110401
  3. THALOMID [Suspect]
     Dosage: 150-200MG
     Route: 048
     Dates: start: 20101001

REACTIONS (1)
  - MULTI-ORGAN FAILURE [None]
